FAERS Safety Report 5248217-0 (Version None)
Quarter: 2007Q1

REPORT INFORMATION
  Report Type: 
  Country: None (occurrence: None)
  Receive Date: 20070222
  Receipt Date: 20070126
  Transmission Date: 20070707
  Serious: Yes (Disabling, Other)
  Sender: FDA-Public Use
  Company Number: 2006VX001636

PATIENT
  Age: 61 Year
  Sex: Female
  Weight: 70 kg

DRUGS (4)
  1. PERMAX [Suspect]
     Indication: PARKINSON'S DISEASE
     Dosage: 3 MG; QD; PO
     Route: 048
     Dates: start: 20001201, end: 20040101
  2. CARBIDOPA AND LEVODOPA [Concomitant]
  3. ENDO LEVODOPA/CARBIDOPA [Concomitant]
  4. PRAMIPEXOLE DIHYDROCHLORIDE [Concomitant]

REACTIONS (2)
  - HYDRONEPHROSIS [None]
  - RETROPERITONEAL FIBROSIS [None]
